FAERS Safety Report 10554035 (Version 1)
Quarter: 2014Q4

REPORT INFORMATION
  Report Type: Spontaneous
  Country: US (occurrence: None)
  Receive Date: 20141028
  Receipt Date: 20141028
  Transmission Date: 20150529
  Serious: Yes (Disabling)
  Sender: FDA-Public Use
  Company Number: 201409192

PATIENT
  Age: 76 Year
  Sex: Male
  Weight: 78.02 kg

DRUGS (1)
  1. XIAFLEX [Suspect]
     Active Substance: COLLAGENASE CLOSTRIDIUM HISTOLYTICUM
     Indication: DUPUYTREN^S CONTRACTURE
     Dosage: 1 IN 1 D,  INTRALESIONAL
     Dates: start: 20140923, end: 20140923

REACTIONS (3)
  - Pain [None]
  - Lymphadenopathy [None]
  - Dupuytren^s contracture [None]

NARRATIVE: CASE EVENT DATE: 20140923
